FAERS Safety Report 8842738 (Version 1)
Quarter: 2012Q4

REPORT INFORMATION
  Report Type: 
  Country: IE (occurrence: IE)
  Receive Date: 20121016
  Receipt Date: 20121016
  Transmission Date: 20130627
  Serious: Yes (Other)
  Sender: FDA-Public Use
  Company Number: IE-ABBOTT-12P-229-0994882-00

PATIENT
  Sex: Female

DRUGS (3)
  1. HUMIRA [Suspect]
     Indication: CROHN^S DISEASE
     Dosage: week 0
  2. HUMIRA [Suspect]
     Dosage: week 2
  3. HUMIRA [Suspect]

REACTIONS (5)
  - Intestinal resection [Unknown]
  - Influenza like illness [Unknown]
  - Chills [Unknown]
  - Arthralgia [Unknown]
  - Pain [Unknown]
